FAERS Safety Report 9839821 (Version 2)
Quarter: 2014Q1

REPORT INFORMATION
  Report Type: Other
  Country: JP (occurrence: JP)
  Receive Date: 20140124
  Receipt Date: 20140220
  Transmission Date: 20141002
  Serious: Yes (Hospitalization)
  Sender: FDA-Public Use
  Company Number: JP-BRISTOL-MYERS SQUIBB COMPANY-20073185

PATIENT
  Age: 78 Year
  Sex: Male

DRUGS (12)
  1. METGLUCO [Suspect]
     Indication: DIABETES MELLITUS
     Route: 048
  2. VILDAGLIPTIN [Suspect]
     Indication: DIABETES MELLITUS
     Route: 048
  3. MIGLITOL [Concomitant]
     Indication: DIABETES MELLITUS
     Route: 048
  4. SITAGLIPTIN PHOSPHATE [Concomitant]
     Indication: DIABETES MELLITUS
     Route: 048
  5. INSULIN GLARGINE [Concomitant]
     Indication: DIABETES MELLITUS
     Dosage: INJECTION
     Route: 058
  6. REPAGLINIDE [Concomitant]
     Indication: DIABETES MELLITUS
     Route: 048
  7. AMLODIPINE [Concomitant]
     Route: 048
  8. ALISKIREN FUMARATE [Concomitant]
     Route: 048
  9. CALCIUM POLYSTYRENE SULFONATE [Concomitant]
     Route: 048
  10. CAMOSTAT MESYLATE [Concomitant]
     Route: 048
  11. LIVER HYDROLYSATE [Concomitant]
     Route: 048
  12. MOSAPRIDE [Concomitant]
     Route: 048

REACTIONS (1)
  - Ileus [Unknown]
